FAERS Safety Report 11245050 (Version 3)
Quarter: 2018Q4

REPORT INFORMATION
  Report Type: Spontaneous
  Country: US (occurrence: US)
  Receive Date: 20150707
  Receipt Date: 20181217
  Transmission Date: 20190204
  Serious: Yes (Other)
  Sender: FDA-Public Use
  Company Number: US-TEVA-576352ACC

PATIENT
  Age: 30 Year
  Sex: Female

DRUGS (2)
  1. VITAMINS [Concomitant]
     Active Substance: VITAMINS
  2. PARAGARD T 380A [Suspect]
     Active Substance: COPPER
     Indication: CONTRACEPTION
     Route: 015
     Dates: start: 201005

REACTIONS (5)
  - Nipple pain [Not Recovered/Not Resolved]
  - Menstruation delayed [Not Recovered/Not Resolved]
  - Dizziness [Not Recovered/Not Resolved]
  - Pregnancy on contraceptive [Unknown]
  - Maternal exposure during pregnancy [Unknown]

NARRATIVE: CASE EVENT DATE: 20150622
